FAERS Safety Report 13252650 (Version 2)
Quarter: 2017Q1

REPORT INFORMATION
  Report Type: Spontaneous
  Country: JP (occurrence: JP)
  Receive Date: 20170220
  Receipt Date: 20170303
  Transmission Date: 20170428
  Serious: Yes (Other)
  Sender: FDA-Public Use
  Company Number: JP-UCBSA-2017005487

PATIENT
  Age: 66 Year
  Sex: Male

DRUGS (3)
  1. E KEPPRA [Suspect]
     Active Substance: LEVETIRACETAM
     Indication: EPILEPSY
     Dosage: 1000 MG DAILY
     Route: 048
     Dates: start: 20160822
  2. DEPAKENE [Suspect]
     Active Substance: VALPROIC ACID
     Dosage: 500 MG DAILY
     Route: 048
  3. DEPAKENE [Suspect]
     Active Substance: VALPROIC ACID
     Indication: PRODUCT USED FOR UNKNOWN INDICATION
     Dosage: ADJUSTMENT BETWEEN BETWEEN 500 MG AND 1200 MG
     Route: 048
     Dates: start: 20150611

REACTIONS (2)
  - Blood creatine phosphokinase increased [Recovered/Resolved]
  - Liver function test increased [Unknown]

NARRATIVE: CASE EVENT DATE: 20170204
